FAERS Safety Report 23041337 (Version 1)
Quarter: 2023Q4

REPORT INFORMATION
  Report Type: Spontaneous
  Country: US (occurrence: US)
  Receive Date: 20231007
  Receipt Date: 20231007
  Transmission Date: 20240110
  Serious: No
  Sender: FDA-Public Use
  Company Number: US-AMGEN-USASP2023177531

PATIENT

DRUGS (1)
  1. REPATHA [Suspect]
     Active Substance: EVOLOCUMAB
     Indication: Blood cholesterol increased
     Dosage: UNK
     Route: 065

REACTIONS (7)
  - Nasal congestion [Unknown]
  - Anosmia [Unknown]
  - Ageusia [Unknown]
  - Cough [Unknown]
  - Rhinorrhoea [Unknown]
  - Ear pain [Unknown]
  - Arthralgia [Unknown]
